FAERS Safety Report 20151726 (Version 1)
Quarter: 2021Q4

REPORT INFORMATION
  Report Type: Spontaneous
  Country: US (occurrence: US)
  Receive Date: 20211206
  Receipt Date: 20211206
  Transmission Date: 20220303
  Serious: No
  Sender: FDA-Public Use
  Company Number: US-HARMONY BIOSCIENCES-2021HMY02172

PATIENT
  Age: 3 Decade
  Sex: Female

DRUGS (3)
  1. WAKIX [Suspect]
     Active Substance: PITOLISANT HYDROCHLORIDE
     Indication: Ehlers-Danlos syndrome
     Dosage: 17.8 MG, 1X/DAY IN THE MORNING
  2. WAKIX [Suspect]
     Active Substance: PITOLISANT HYDROCHLORIDE
     Indication: Narcolepsy
     Dosage: 35.6 MG, 1X/DAY IN THE MORNING
     Dates: start: 2020
  3. ^ALL KINDS OF PSYCH MEDS^ [Concomitant]

REACTIONS (1)
  - Fatigue [Recovering/Resolving]
